FAERS Safety Report 6463265-0 (Version None)
Quarter: 2009Q4

REPORT INFORMATION
  Report Type: 
  Country: None (occurrence: None)
  Receive Date: 20091130
  Receipt Date: 20090605
  Transmission Date: 20100525
  Serious: Yes (Other)
  Sender: FDA-Public Use
  Company Number: US-AMGEN-QUU344599

PATIENT
  Age: 61 Year
  Sex: Male

DRUGS (5)
  1. ENBREL [Suspect]
     Indication: DRUG USE FOR UNKNOWN INDICATION
  2. NABUMETONE [Concomitant]
  3. HYDROCODONE [Concomitant]
  4. UNSPECIFIED MEDICATION [Concomitant]
  5. METHOTREXATE [Concomitant]

REACTIONS (1)
  - PROSTATE CANCER [None]
